FAERS Safety Report 18171701 (Version 1)
Quarter: 2020Q3

REPORT INFORMATION
  Report Type: Spontaneous
  Country: GB (occurrence: GB)
  Receive Date: 20200819
  Receipt Date: 20200819
  Transmission Date: 20201103
  Serious: Yes (Other)
  Sender: FDA-Public Use
  Company Number: GB-ASCEND THERAPEUTICS US, LLC-2088809

PATIENT
  Age: 50 Year
  Sex: Female
  Weight: 80 kg

DRUGS (3)
  1. ESTROGEL [Suspect]
     Active Substance: ESTRADIOL
     Indication: MENOPAUSE
     Route: 062
     Dates: start: 20200630
  2. ESTROGEL [Suspect]
     Active Substance: ESTRADIOL
  3. OESTRODOSE (ESTRADIOL)?INDICATION FOR USE: MENOPAUSE [Suspect]
     Active Substance: ESTRADIOL
     Route: 062
     Dates: start: 20200630

REACTIONS (3)
  - Product substitution issue [Unknown]
  - Drug ineffective [Unknown]
  - Menopausal symptoms [Not Recovered/Not Resolved]

NARRATIVE: CASE EVENT DATE: 20200701
